FAERS Safety Report 8167292-7 (Version None)
Quarter: 2012Q1

REPORT INFORMATION
  Report Type: 
  Country: None (occurrence: None)
  Receive Date: 20120227
  Receipt Date: 20120226
  Transmission Date: 20120608
  Serious: No
  Sender: FDA-Public Use
  Company Number: US-PFIZER INC-2012050137

PATIENT
  Sex: Female
  Weight: 83.9 kg

DRUGS (6)
  1. CHANTIX [Suspect]
     Dosage: UNK
     Dates: start: 20120201, end: 20120201
  2. ALLEGRA-D 12 HOUR [Concomitant]
     Indication: SINUS DISORDER
     Dosage: UNK
  3. WELLBUTRIN [Concomitant]
     Dosage: UNK
  4. CHANTIX [Suspect]
     Dosage: 1 MG, 2X/DAY
     Dates: start: 20120201
  5. PREVACID [Concomitant]
     Indication: DYSPEPSIA
     Dosage: 15 MG, UNK
  6. CHANTIX [Suspect]
     Indication: SMOKING CESSATION THERAPY
     Dosage: 0.5 MG, DAILY
     Dates: start: 20120201, end: 20120201

REACTIONS (5)
  - DEPRESSED MOOD [None]
  - ABNORMAL DREAMS [None]
  - AGITATION [None]
  - NAUSEA [None]
  - SLEEP DISORDER [None]
